FAERS Safety Report 4607571-0 (Version None)
Quarter: 2005Q1

REPORT INFORMATION
  Report Type: 
  Country: None (occurrence: None)
  Receive Date: 20050310
  Receipt Date: 20050224
  Transmission Date: 20050727
  Serious: Yes (Other)
  Sender: FDA-Public Use
  Company Number: 200415967BCC

PATIENT
  Age: 61 Year
  Sex: Female
  Weight: 58.9676 kg

DRUGS (1)
  1. ALEVE (CAPLET) [Suspect]
     Indication: PAIN
     Dosage: 220 MG, BIW, ORAL
     Route: 048
     Dates: start: 20041207

REACTIONS (6)
  - BLOOD POTASSIUM DECREASED [None]
  - BLOOD PRESSURE SYSTOLIC INCREASED [None]
  - FATIGUE [None]
  - FEELING ABNORMAL [None]
  - HEART RATE INCREASED [None]
  - NAUSEA [None]
